FAERS Safety Report 5850675-5 (Version None)
Quarter: 2008Q3

REPORT INFORMATION
  Report Type: 
  Country: None (occurrence: None)
  Receive Date: 20080820
  Receipt Date: 20080811
  Transmission Date: 20090109
  Serious: Yes (Other)
  Sender: FDA-Public Use
  Company Number: DE-BRISTOL-MYERS SQUIBB COMPANY-14297352

PATIENT
  Age: 22 Year
  Sex: Male

DRUGS (6)
  1. ETOPOSIDE [Suspect]
  2. ENDOXAN [Suspect]
  3. DOXORUBICIN HCL [Suspect]
  4. BLEOMYCIN SULFATE [Suspect]
  5. PROCARBAZINE [Suspect]
  6. VINCRISTINE [Suspect]

REACTIONS (13)
  - BACTERIAL SEPSIS [None]
  - CHILLS [None]
  - CONVULSION [None]
  - DIARRHOEA [None]
  - FALL [None]
  - MYOCLONUS [None]
  - PANCYTOPENIA [None]
  - PYREXIA [None]
  - RENAL FAILURE ACUTE [None]
  - RESPIRATORY FAILURE [None]
  - SEPTIC SHOCK [None]
  - SUBARACHNOID HAEMORRHAGE [None]
  - VOMITING [None]
